FAERS Safety Report 5044643-3 (Version None)
Quarter: 2006Q3

REPORT INFORMATION
  Report Type: 
  Country: None (occurrence: None)
  Receive Date: 20060706
  Receipt Date: 20060627
  Transmission Date: 20061208
  Serious: Yes (Other)
  Sender: FDA-Public Use
  Company Number: FR-ABBOTT-06P-056-0337139-00

PATIENT
  Age: 38 Year
  Sex: Female

DRUGS (2)
  1. DEPAKENE [Suspect]
     Indication: DRUG USE FOR UNKNOWN INDICATION
     Route: 048
  2. EUGYNON [Concomitant]
     Indication: ORAL CONTRACEPTION
     Route: 048

REACTIONS (3)
  - ANAEMIA [None]
  - SERUM FERRITIN DECREASED [None]
  - THROMBOCYTOPENIA [None]
